FAERS Safety Report 6552542-0 (Version None)
Quarter: 2010Q1

REPORT INFORMATION
  Report Type: 
  Country: None (occurrence: None)
  Receive Date: 20100121
  Receipt Date: 20100114
  Transmission Date: 20100710
  Serious: Yes (Other)
  Sender: FDA-Public Use
  Company Number: TRP_06635_2009

PATIENT
  Sex: Female

DRUGS (3)
  1. RIBAPAK (NOT SPECIFIED) [Suspect]
     Indication: HEPATITIS C
     Dosage: 800 MG, DAILY ORAL)
     Route: 048
     Dates: start: 20091117
  2. PEGASYS [Suspect]
     Indication: HEPATITIS C
     Dosage: 180 ?G 1X/WEEK
     Dates: start: 20091117
  3. CLONOPIN [Concomitant]

REACTIONS (16)
  - ABDOMINAL PAIN [None]
  - ARTHRALGIA [None]
  - ASTHENIA [None]
  - BLISTER [None]
  - CATARACT [None]
  - CHILLS [None]
  - DIARRHOEA [None]
  - DRUG DOSE OMISSION [None]
  - EAR DISORDER [None]
  - FATIGUE [None]
  - FEELING ABNORMAL [None]
  - HEADACHE [None]
  - HERPES ZOSTER OPHTHALMIC [None]
  - MYALGIA [None]
  - NASAL DISORDER [None]
  - PYREXIA [None]
